FAERS Safety Report 6264788-X (Version None)
Quarter: 2009Q3

REPORT INFORMATION
  Report Type: 
  Country: None (occurrence: None)
  Receive Date: 20090710
  Receipt Date: 20090702
  Transmission Date: 20100115
  Serious: Yes (Hospitalization)
  Sender: FDA-Public Use
  Company Number: US-GENENTECH-225919

PATIENT
  Sex: Male

DRUGS (5)
  1. BEVACIZUMAB [Suspect]
     Indication: PROSTATE CANCER
     Dosage: 15 MG/KG, Q3W
     Route: 042
     Dates: start: 20060214, end: 20060317
  2. DEXAMETHASONE TAB [Suspect]
     Indication: PROSTATE CANCER
     Dosage: 8 MG, UNK
     Route: 048
     Dates: start: 20060214, end: 20060317
  3. DOCETAXEL [Suspect]
     Indication: PROSTATE CANCER
     Dosage: 75 MG/M2, Q3W
     Route: 042
     Dates: start: 20060214, end: 20060317
  4. PREDNISONE TAB [Suspect]
     Indication: PROSTATE CANCER
     Dosage: 5 MG, X2
     Route: 048
     Dates: start: 20060214, end: 20060317
  5. ASPIRIN [Suspect]
     Indication: DRUG USE FOR UNKNOWN INDICATION

REACTIONS (3)
  - ARRHYTHMIA SUPRAVENTRICULAR [None]
  - ATRIAL FLUTTER [None]
  - GASTROINTESTINAL HAEMORRHAGE [None]
